FAERS Safety Report 10512546 (Version 2)
Quarter: 2015Q1

REPORT INFORMATION
  Report Type: Report from Study
  Country: US (occurrence: US)
  Receive Date: 20141011
  Receipt Date: 20150218
  Transmission Date: 20150720
  Serious: Yes (Other)
  Sender: FDA-Public Use
  Company Number: US-ABBVIE-14K-163-1292056-00

PATIENT
  Age: 65 Year
  Sex: Female

DRUGS (16)
  1. A AND D NOS [Suspect]
     Active Substance: DIMETHICONE\ZINC OXIDE OR PETROLATUM
     Indication: PURULENT DISCHARGE
  2. BUSPIRONE [Concomitant]
     Active Substance: BUSPIRONE HYDROCHLORIDE
     Indication: ANXIETY
  3. TRAZODONE [Concomitant]
     Active Substance: TRAZODONE HYDROCHLORIDE
     Indication: PAIN
  4. VITAMIN E NOS [Concomitant]
     Indication: VITAMIN SUPPLEMENTATION
  5. A AND D NOS [Suspect]
     Active Substance: DIMETHICONE\ZINC OXIDE OR PETROLATUM
     Indication: ERYTHEMA
  6. VENLAFAXINE [Concomitant]
     Active Substance: VENLAFAXINE HYDROCHLORIDE
     Indication: DEPRESSION
  7. VENLAFAXINE [Concomitant]
     Active Substance: VENLAFAXINE HYDROCHLORIDE
     Indication: ANXIETY
  8. BUSPIRONE [Concomitant]
     Active Substance: BUSPIRONE HYDROCHLORIDE
     Indication: DEPRESSION
  9. METOPROLOL [Concomitant]
     Active Substance: METOPROLOL
     Indication: HYPERTENSION
  10. HUMIRA [Suspect]
     Active Substance: ADALIMUMAB
     Indication: CROHN^S DISEASE
     Route: 065
     Dates: start: 20140731
  11. OMEPRAZOLE. [Concomitant]
     Active Substance: OMEPRAZOLE
     Indication: CROHN^S DISEASE
  12. CRESTOR [Concomitant]
     Active Substance: ROSUVASTATIN CALCIUM
     Indication: PROPHYLAXIS
  13. A AND D NOS [Suspect]
     Active Substance: DIMETHICONE\ZINC OXIDE OR PETROLATUM
     Indication: ACNE
     Route: 065
  14. A AND D NOS [Suspect]
     Active Substance: DIMETHICONE\ZINC OXIDE OR PETROLATUM
     Indication: FURUNCLE
  15. LOMOTIL [Concomitant]
     Active Substance: ATROPINE SULFATE\DIPHENOXYLATE HYDROCHLORIDE
     Indication: CROHN^S DISEASE
     Dosage: 2.5/0.25 MG
  16. VITAMIN D [Concomitant]
     Active Substance: CHOLECALCIFEROL
     Indication: VITAMIN SUPPLEMENTATION

REACTIONS (6)
  - Angina pectoris [Recovered/Resolved]
  - Purulent discharge [Not Recovered/Not Resolved]
  - Acne [Not Recovered/Not Resolved]
  - Furuncle [Not Recovered/Not Resolved]
  - No therapeutic response [Not Recovered/Not Resolved]
  - Erythema [Not Recovered/Not Resolved]

NARRATIVE: CASE EVENT DATE: 201408
